FAERS Safety Report 24319650 (Version 1)
Quarter: 2024Q3

REPORT INFORMATION
  Report Type: Spontaneous
  Country: DE (occurrence: DE)
  Receive Date: 20240914
  Receipt Date: 20240914
  Transmission Date: 20241016
  Serious: Yes (Other)
  Sender: TEVA
  Company Number: DE-TEVA-VS-3241651

PATIENT
  Sex: Female

DRUGS (2)
  1. PANTOPRAZOLE SODIUM [Suspect]
     Active Substance: PANTOPRAZOLE SODIUM
     Indication: Barrett^s oesophagus
     Dosage: FEW YEARS AGO
     Route: 065
  2. PANTOPRAZOLE SODIUM [Suspect]
     Active Substance: PANTOPRAZOLE SODIUM
     Indication: Barrett^s oesophagus
     Dosage: FOR YEARS
     Route: 065

REACTIONS (2)
  - Oesophageal carcinoma [Unknown]
  - Anaemia vitamin B12 deficiency [Unknown]
